FAERS Safety Report 9596848 (Version 2)
Quarter: 2013Q4

REPORT INFORMATION
  Report Type: Spontaneous
  Country: US (occurrence: US)
  Receive Date: 20131004
  Receipt Date: 20131004
  Transmission Date: 20140711
  Serious: Yes (Hospitalization, Other)
  Sender: FDA-Public Use
  Company Number: US-B.I. PHARMACEUTICALS,INC./RIDGEFIELD-2013-BI-11999BP

PATIENT
  Age: 79 Year
  Sex: Female
  Weight: 65.77 kg

DRUGS (8)
  1. PRADAXA [Suspect]
     Indication: ANTICOAGULANT THERAPY
     Dosage: 150 MG
     Route: 048
     Dates: start: 20110425, end: 20111003
  2. PRAVASTATIN [Concomitant]
     Dosage: 20 MG
     Route: 048
  3. BYSTOLIC [Concomitant]
     Dosage: 10 MG
     Route: 048
  4. PREMARIN [Concomitant]
     Dosage: 0.45 MG
     Route: 048
  5. MULTAQ [Concomitant]
     Dosage: 800 MG
     Route: 048
  6. LASIX [Concomitant]
     Indication: FLUID RETENTION
     Route: 048
  7. KLOR-CON [Concomitant]
     Route: 048
  8. CENTRUM [Concomitant]
     Route: 048

REACTIONS (4)
  - Gastrointestinal haemorrhage [Unknown]
  - Haemorrhagic anaemia [Unknown]
  - Coagulopathy [Unknown]
  - Renal failure acute [Unknown]
